FAERS Safety Report 22014089 (Version 2)
Quarter: 2023Q2

REPORT INFORMATION
  Report Type: Report from Study
  Country: US (occurrence: US)
  Receive Date: 20230221
  Receipt Date: 20230515
  Transmission Date: 20230722
  Serious: Yes (Other)
  Sender: FDA-Public Use
  Company Number: US-ABBVIE-4312424

PATIENT
  Age: 64 Year
  Sex: Female

DRUGS (1)
  1. SKYRIZI [Suspect]
     Active Substance: RISANKIZUMAB-RZAA
     Indication: Psoriasis
     Route: 058
     Dates: start: 20230126

REACTIONS (8)
  - Loss of consciousness [Unknown]
  - Staring [Unknown]
  - Vomiting [Unknown]
  - Drooling [Unknown]
  - Mental status changes [Recovered/Resolved]
  - Headache [Unknown]
  - Sensory loss [Unknown]
  - Memory impairment [Unknown]

NARRATIVE: CASE EVENT DATE: 20230209
